FAERS Safety Report 7103796-3 (Version None)
Quarter: 2010Q4

REPORT INFORMATION
  Report Type: 
  Country: None (occurrence: None)
  Receive Date: 20101115
  Receipt Date: 20101108
  Transmission Date: 20110411
  Serious: Yes (Other)
  Sender: FDA-Public Use
  Company Number: FR-PFIZER INC-2010142248

PATIENT
  Age: 80 Year
  Sex: Male

DRUGS (2)
  1. TAHOR [Suspect]
     Dosage: 10 MG, UNK
     Dates: start: 20090101, end: 20101106
  2. TAHOR [Suspect]
     Dosage: 20 MG, UNK
     Dates: start: 20100101, end: 20101106

REACTIONS (2)
  - MYALGIA [None]
  - PLATELET COUNT DECREASED [None]
